FAERS Safety Report 8449845-1 (Version None)
Quarter: 2012Q2

REPORT INFORMATION
  Report Type: 
  Country: None (occurrence: None)
  Receive Date: 20120620
  Receipt Date: 20120607
  Transmission Date: 20120825
  Serious: No
  Sender: FDA-Public Use
  Company Number: US-JNJFOC-20120604503

PATIENT
  Age: 85 Year
  Sex: Female
  Weight: 77.11 kg

DRUGS (4)
  1. BLOOD THINNER [Concomitant]
     Indication: PROPHYLAXIS
     Route: 048
  2. FENTANYL-100 [Suspect]
     Indication: ARTHRITIS
     Route: 062
  3. PROTONIX [Concomitant]
     Indication: HIATUS HERNIA
     Route: 048
  4. ARTHROTEC [Concomitant]
     Indication: ARTHRITIS
     Route: 048

REACTIONS (5)
  - DRUG ADMINISTERED AT INAPPROPRIATE SITE [None]
  - PAIN [None]
  - DRUG DOSE OMISSION [None]
  - PRODUCT QUALITY ISSUE [None]
  - ANXIETY [None]
